FAERS Safety Report 19009902 (Version 1)
Quarter: 2021Q1

REPORT INFORMATION
  Report Type: Spontaneous
  Country: FR (occurrence: FR)
  Receive Date: 20210315
  Receipt Date: 20210315
  Transmission Date: 20210420
  Serious: Yes (Hospitalization)
  Sender: FDA-Public Use
  Company Number: NVSC2021FR047627

PATIENT
  Age: 72 Year
  Sex: Female
  Weight: 63 kg

DRUGS (25)
  1. CYCLOPHOSPHAMIDE. [Suspect]
     Active Substance: CYCLOPHOSPHAMIDE
     Dosage: 495 MG (SINGLE ON DAY 3 OF INDUCTION 2)
     Route: 065
     Dates: start: 20201224
  2. MOVICOL [Concomitant]
     Active Substance: POLYETHYLENE GLYCOL 3350\POTASSIUM CHLORIDE\SODIUM BICARBONATE\SODIUM CHLORIDE
     Indication: CONSTIPATION
     Dosage: 1 DF (AS NEEDED UP TO 2 PER DAY)
     Route: 065
  3. ZARZIO [Concomitant]
     Active Substance: FILGRASTIM
     Indication: APLASIA
     Dosage: 1 DF, QD
     Route: 059
     Dates: start: 20210202, end: 20210206
  4. VINCRISTINE SULFATE. [Suspect]
     Active Substance: VINCRISTINE SULFATE
     Dosage: 2 MG (SINGLE ON DAY 15 OF INDUCTION 1)
     Route: 065
     Dates: start: 20201208, end: 20201208
  5. CYCLOPHOSPHAMIDE. [Suspect]
     Active Substance: CYCLOPHOSPHAMIDE
     Indication: INFECTION PROPHYLAXIS
     Dosage: 495 MG (SINGLE ON DAY 1 OF INDUCTION 2)
     Route: 065
     Dates: start: 20201222, end: 20201222
  6. METHOTREXATE. [Suspect]
     Active Substance: METHOTREXATE
     Indication: PRODUCT USED FOR UNKNOWN INDICATION
     Dosage: 15 MG (SINGLE ON DAY 2 OF INDUCTION 1)
     Route: 037
     Dates: start: 20201125, end: 20201125
  7. INOTUZUMAB OZOGAMICIN [Concomitant]
     Active Substance: INOTUZUMAB OZOGAMICIN
     Indication: PRODUCT USED FOR UNKNOWN INDICATION
     Dosage: 1.32 MG (SINGLE ON DAY 1 OF INDUCTION 1)
     Route: 065
     Dates: start: 20201124, end: 20201124
  8. INOTUZUMAB OZOGAMICIN [Concomitant]
     Active Substance: INOTUZUMAB OZOGAMICIN
     Dosage: 0.83 MG (SINGLE ON DAY 1 OF INDUCTION 2)
     Route: 065
     Dates: start: 20201222, end: 20201222
  9. BROMAZEPAM [Concomitant]
     Active Substance: BROMAZEPAM
     Indication: PRODUCT USED FOR UNKNOWN INDICATION
     Dosage: 0.25 DF, QD (1X/DAY IN THE EVENING)
     Route: 065
  10. BACTRIM [Concomitant]
     Active Substance: SULFAMETHOXAZOLE\TRIMETHOPRIM
     Indication: INFECTION PROPHYLAXIS
     Dosage: 1 DF (1 DF OF 800 MG/160 MG, CYCLIC ON MONDAYS, WEDNESDAYS AND FRIDAYS)
     Route: 048
     Dates: start: 20201125
  11. CYTARABINE. [Suspect]
     Active Substance: CYTARABINE
     Indication: PRODUCT USED FOR UNKNOWN INDICATION
     Dosage: 40 MG (40 MG, SINGLE ON DAY 2)
     Route: 065
     Dates: start: 20201125, end: 20201125
  12. CYCLOPHOSPHAMIDE. [Suspect]
     Active Substance: CYCLOPHOSPHAMIDE
     Dosage: 495 MG (SINGLE ON DAY 2 OF INDUCTION 2)
     Route: 065
     Dates: start: 20201223, end: 20201223
  13. DOLIPRANE [Concomitant]
     Active Substance: ACETAMINOPHEN
     Indication: PRODUCT USED FOR UNKNOWN INDICATION
     Dosage: UNK
     Route: 065
  14. ZELITREX [Concomitant]
     Active Substance: VALACYCLOVIR HYDROCHLORIDE
     Indication: INFECTION PROPHYLAXIS
     Dosage: 1000 MG, QD (2X/DAY IN THE MORNING AND IN THE EVENING)
     Route: 048
     Dates: start: 20201125
  15. INOTUZUMAB OZOGAMICIN [Concomitant]
     Active Substance: INOTUZUMAB OZOGAMICIN
     Dosage: 0.83 MG (SINGLE ON DAY 8 OF INDUCTION 1)
     Route: 065
     Dates: start: 20201201, end: 20201201
  16. GAVISCON [Concomitant]
     Active Substance: ALUMINUM HYDROXIDE\MAGNESIUM CARBONATE
     Indication: DYSPEPSIA
     Dosage: 1 DF (AS NEEDED UP TO 3 TIMES DAILY AS NEEDED)
     Route: 065
  17. VINCRISTINE SULFATE. [Suspect]
     Active Substance: VINCRISTINE SULFATE
     Dosage: 2 MG (SINGLE ON DAY 22 OF INDUCTION 1)
     Route: 065
     Dates: start: 20201215
  18. VINCRISTINE SULFATE. [Suspect]
     Active Substance: VINCRISTINE SULFATE
     Dosage: 2 MG (SINGLE ON DAY 8 OF INDUCTION 1)
     Route: 065
     Dates: start: 20201201, end: 20201201
  19. CYTARABINE. [Suspect]
     Active Substance: CYTARABINE
     Dosage: 40 MG (SINGLE ON DAY 2 OF INDUCTION 2)
     Route: 065
     Dates: start: 20201223
  20. FOLINORAL [Concomitant]
     Active Substance: LEUCOVORIN CALCIUM
     Indication: ANAEMIA PROPHYLAXIS
     Dosage: 5 MG, QD (DAILY IN THE MORNING)
     Route: 048
     Dates: start: 20201125
  21. INEXIUM [Concomitant]
     Active Substance: ESOMEPRAZOLE
     Indication: PRODUCT USED FOR UNKNOWN INDICATION
     Dosage: UNK (AS NEEDED)
     Route: 065
  22. INOTUZUMAB OZOGAMICIN [Concomitant]
     Active Substance: INOTUZUMAB OZOGAMICIN
     Dosage: 0.83 MG (SINGLE ON DAY 15 OF INDUCTION 1)
     Route: 065
     Dates: start: 20201208, end: 20201208
  23. INOTUZUMAB OZOGAMICIN [Concomitant]
     Active Substance: INOTUZUMAB OZOGAMICIN
     Dosage: 0.83 MG (SINGLE ON DAY 8 OF INDUCTION 2)
     Route: 065
     Dates: start: 20201229
  24. VINCRISTINE SULFATE. [Suspect]
     Active Substance: VINCRISTINE SULFATE
     Indication: PRODUCT USED FOR UNKNOWN INDICATION
     Dosage: 2 MG (SINGLE ON DAY 1 OF INDUCTION 1)
     Route: 065
     Dates: start: 20201124, end: 20201124
  25. METHOTREXATE. [Suspect]
     Active Substance: METHOTREXATE
     Dosage: 15 MG (SINGLE ON DAY 2 OF INDUCTION 2)
     Route: 037
     Dates: start: 20201223, end: 20201223

REACTIONS (2)
  - Acute kidney injury [Not Recovered/Not Resolved]
  - Sepsis [Not Recovered/Not Resolved]

NARRATIVE: CASE EVENT DATE: 20210206
